FAERS Safety Report 4269531-1 (Version None)
Quarter: 2004Q1

REPORT INFORMATION
  Report Type: 
  Country: None (occurrence: None)
  Receive Date: 20040113
  Receipt Date: 20040106
  Transmission Date: 20041129
  Serious: Yes (Hospitalization)
  Sender: FDA-Public Use
  Company Number: PHFR2004GB00490

PATIENT
  Age: 38 Year
  Sex: Male

DRUGS (3)
  1. CYCLOSPORINE [Suspect]
     Indication: RENAL TRANSPLANT
     Route: 065
  2. IRBESARTAN [Suspect]
     Route: 048
  3. DOXAZOSIN MESYLATE [Suspect]
     Route: 065

REACTIONS (3)
  - GASTROSTOMY TUBE INSERTION [None]
  - LARYNGEAL OEDEMA [None]
  - VOCAL CORD PARALYSIS [None]
